FAERS Safety Report 13254761 (Version 1)
Quarter: 2017Q1

REPORT INFORMATION
  Report Type: Spontaneous
  Country: US (occurrence: US)
  Receive Date: 20170217
  Receipt Date: 20170217
  Transmission Date: 20170428
  Serious: Yes (Hospitalization)
  Sender: FDA-Public Use
  Company Number: None

PATIENT
  Age: 59 Year
  Sex: Male
  Weight: 97.1 kg

DRUGS (30)
  1. AMOLIDIPINE [Concomitant]
  2. TIZANIDINE HCL [Concomitant]
     Active Substance: TIZANIDINE HYDROCHLORIDE
  3. DEXTROSE. [Concomitant]
     Active Substance: DEXTROSE
  4. ROBAXIN [Concomitant]
     Active Substance: METHOCARBAMOL
  5. ATENOLOL. [Concomitant]
     Active Substance: ATENOLOL
  6. BACLOFEN. [Concomitant]
     Active Substance: BACLOFEN
  7. HYZAAR [Concomitant]
     Active Substance: HYDROCHLOROTHIAZIDE\LOSARTAN POTASSIUM
  8. PROAIR HFA [Concomitant]
     Active Substance: ALBUTEROL SULFATE
  9. TERAZOSIN [Concomitant]
     Active Substance: TERAZOSIN\TERAZOSIN HYDROCHLORIDE
  10. ZOFRAN [Concomitant]
     Active Substance: ONDANSETRON HYDROCHLORIDE
  11. HEPARIN [Concomitant]
     Active Substance: HEPARIN SODIUM
  12. ALUMINUM-MAGNESIUM-SIMETHICONE HYDROXIDE [Concomitant]
  13. INSUIN REGULAR [Concomitant]
  14. NALOXONE [Concomitant]
     Active Substance: NALOXONE
  15. XANAX [Concomitant]
     Active Substance: ALPRAZOLAM
  16. PYRICA [Concomitant]
  17. ACETAMINOPHEN. [Concomitant]
     Active Substance: ACETAMINOPHEN
  18. ZEPATIER [Suspect]
     Active Substance: ELBASVIR\GRAZOPREVIR
     Dosage: 50MG/100MG QD ORAL
     Route: 048
     Dates: start: 20161103, end: 20170126
  19. PERCOCET [Concomitant]
     Active Substance: ACETAMINOPHEN\OXYCODONE HYDROCHLORIDE
  20. CYMBALTA [Concomitant]
     Active Substance: DULOXETINE HYDROCHLORIDE
  21. FLUTICASONE. [Concomitant]
     Active Substance: FLUTICASONE
  22. PRILOSEC [Concomitant]
     Active Substance: OMEPRAZOLE MAGNESIUM
  23. PIOGLITAZONE. [Concomitant]
     Active Substance: PIOGLITAZONE
  24. AMBIEN [Concomitant]
     Active Substance: ZOLPIDEM TARTRATE
  25. DOCUSATE SODIUM. [Concomitant]
     Active Substance: DOCUSATE SODIUM
  26. GLUCOSE [Concomitant]
     Active Substance: DEXTROSE
  27. DEMEROL [Concomitant]
     Active Substance: MEPERIDINE HYDROCHLORIDE
  28. SENNA DOCUSATE [Concomitant]
  29. AEROSOL SO LUTION [Concomitant]
  30. LIPITOR [Concomitant]
     Active Substance: ATORVASTATIN CALCIUM

REACTIONS (2)
  - Encephalopathy [None]
  - Overdose [None]

NARRATIVE: CASE EVENT DATE: 20161107
